FAERS Safety Report 7276436-0 (Version None)
Quarter: 2011Q1

REPORT INFORMATION
  Report Type: 
  Country: None (occurrence: None)
  Receive Date: 20110204
  Receipt Date: 20110203
  Transmission Date: 20110831
  Serious: Yes (Hospitalization, Other)
  Sender: FDA-Public Use
  Company Number: FR-PFIZER INC-2009224407

PATIENT
  Age: 74 Year
  Sex: Male

DRUGS (12)
  1. SUTENT [Suspect]
     Indication: RENAL CANCER
     Dosage: 50 MG, 1X/DAY, 4 WEEKS OUT OF 6
     Route: 048
     Dates: start: 20090429
  2. COVERSYL [Concomitant]
     Dosage: 5 MG, 1X/DAY
     Route: 048
  3. GLYBURIDE [Concomitant]
     Dosage: 5 MG, UNK
     Route: 048
     Dates: end: 20090501
  4. GLUCOR [Concomitant]
     Dosage: 250 MG, 1X/DAY
     Route: 048
  5. CORDARONE [Interacting]
     Indication: ATRIAL FIBRILLATION
     Dosage: 100 MG, 1X/DAY
     Route: 048
     Dates: start: 20080101
  6. COUMADIN [Interacting]
     Indication: THROMBOSIS PROPHYLAXIS
     Dosage: 2 MG DAILY DEPENDING ON INR
     Route: 048
     Dates: start: 20080101, end: 20090518
  7. ASPIRIN [Interacting]
     Indication: THROMBOSIS PROPHYLAXIS
     Dosage: 75 MG, 1X/DAY
     Route: 048
  8. CRESTOR [Interacting]
     Indication: HYPERCHOLESTEROLAEMIA
     Dosage: 20 MG, 1X/DAY
     Route: 048
     Dates: end: 20090519
  9. EZETROL [Concomitant]
     Dosage: 10 MG, 1X/DAY
     Route: 048
     Dates: end: 20090519
  10. TRIFLUCAN [Interacting]
     Indication: MYCOSIS FUNGOIDES
     Dosage: 100 MG, 1X/DAY
     Route: 048
     Dates: start: 20090429
  11. BISOPROLOL FUMARATE [Concomitant]
     Dosage: 10 MG, 1X/DAY
     Route: 048
  12. COUMADIN [Interacting]
     Dosage: 2 MG, DAILY DEPENDING ON INR
     Route: 048
     Dates: start: 20090520, end: 20090524

REACTIONS (4)
  - HAEMOPTYSIS [None]
  - GINGIVAL BLEEDING [None]
  - INTERNATIONAL NORMALISED RATIO INCREASED [None]
  - DRUG INTERACTION [None]
